FAERS Safety Report 7557881-2 (Version None)
Quarter: 2011Q2

REPORT INFORMATION
  Report Type: 
  Country: None (occurrence: None)
  Receive Date: 20110620
  Receipt Date: 20110602
  Transmission Date: 20111010
  Serious: Yes (Hospitalization)
  Sender: FDA-Public Use
  Company Number: A0835284A

PATIENT
  Age: 73 Year
  Sex: Male
  Weight: 100 kg

DRUGS (8)
  1. LOTREL [Concomitant]
  2. ZOVIRAX [Concomitant]
  3. AVANDIA [Suspect]
     Indication: DIABETES MELLITUS
     Route: 048
     Dates: start: 20040101, end: 20070101
  4. AVANDAMET [Suspect]
     Indication: DIABETES MELLITUS
     Route: 048
  5. MEVACOR [Concomitant]
  6. FLOMAX [Concomitant]
  7. LOVASTATIN [Concomitant]
  8. INSULIN [Concomitant]

REACTIONS (3)
  - AORTIC VALVE STENOSIS [None]
  - CARDIAC FAILURE CONGESTIVE [None]
  - HEART VALVE REPLACEMENT [None]
